FAERS Safety Report 12743880 (Version 1)
Quarter: 2016Q3

REPORT INFORMATION
  Report Type: Spontaneous
  Country: US (occurrence: US)
  Receive Date: 20160914
  Receipt Date: 20160914
  Transmission Date: 20161109
  Serious: Yes (Other)
  Sender: FDA-Public Use
  Company Number: US-PFIZER INC-3102421

PATIENT
  Age: 36 Day
  Sex: Male

DRUGS (1)
  1. METRONIDAZOLE. [Suspect]
     Active Substance: METRONIDAZOLE
     Indication: BACTERIAL VAGINOSIS
     Dosage: UNK
     Route: 064

REACTIONS (3)
  - Neurotoxicity [Recovered/Resolved]
  - Maternal exposure during pregnancy [Unknown]
  - Toxicity to various agents [Recovered/Resolved]
